FAERS Safety Report 20962204 (Version 1)
Quarter: 2022Q2

REPORT INFORMATION
  Report Type: Spontaneous
  Country: CN (occurrence: None)
  Receive Date: 20220615
  Receipt Date: 20220615
  Transmission Date: 20220721
  Serious: Yes (Other)
  Sender: FDA-Public Use
  Company Number: CN-ROCHE-3112268

PATIENT
  Age: 50 Year
  Sex: Female

DRUGS (16)
  1. HERCEPTIN [Suspect]
     Active Substance: TRASTUZUMAB
     Indication: Breast cancer metastatic
     Route: 065
     Dates: start: 20171013
  2. HERCEPTIN [Suspect]
     Active Substance: TRASTUZUMAB
     Dosage: TRASTUZUMAB + CAPECITABINE
     Route: 065
     Dates: start: 20200804
  3. HERCEPTIN [Suspect]
     Active Substance: TRASTUZUMAB
     Dosage: TRASTUZUMAB + CAPECITABINE FOR 6 CYCLES
     Route: 065
     Dates: start: 20151029, end: 20161027
  4. HERCEPTIN [Suspect]
     Active Substance: TRASTUZUMAB
     Dosage: TRASTUZUMAB COMBINED WITH EXEMESTANE
     Route: 065
     Dates: start: 20180418, end: 20200714
  5. ZOLEDRONIC ACID [Concomitant]
     Active Substance: ZOLEDRONIC ACID
     Dates: start: 20151026, end: 20161027
  6. CISPLATIN [Concomitant]
     Active Substance: CISPLATIN
     Indication: Breast cancer metastatic
     Dates: start: 20171018, end: 20171021
  7. CISPLATIN [Concomitant]
     Active Substance: CISPLATIN
     Dosage: GEMCITABINE HYDROCHLORIDE+CISPLATIN,D1-4
     Dates: start: 20171104
  8. GEMCITABINE HYDROCHLORIDE [Concomitant]
     Active Substance: GEMCITABINE HYDROCHLORIDE
     Indication: Breast cancer metastatic
     Dosage: D1, D8
     Dates: start: 20171104
  9. DOCETAXEL [Concomitant]
     Active Substance: DOCETAXEL
     Indication: Breast cancer metastatic
     Dates: start: 20171126
  10. EXEMESTANE [Concomitant]
     Active Substance: EXEMESTANE
     Indication: Breast cancer metastatic
     Dates: start: 20180418, end: 20200714
  11. EXEMESTANE [Concomitant]
     Active Substance: EXEMESTANE
     Dates: start: 20200804
  12. PYROTINIB MALEATE [Concomitant]
     Active Substance: PYROTINIB MALEATE
     Indication: Breast cancer metastatic
     Dates: start: 20211026
  13. CAPECITABINE [Concomitant]
     Active Substance: CAPECITABINE
     Indication: Breast cancer metastatic
     Dosage: TRASTUZUMAB + CAPECITABINE FOR 6 CYCLE
     Route: 048
  14. CAPECITABINE [Concomitant]
     Active Substance: CAPECITABINE
     Dosage: TRASTUZUMAB COMBINED WITH CAPECITABINE
     Dates: start: 20200804
  15. CAPECITABINE [Concomitant]
     Active Substance: CAPECITABINE
     Dosage: CAPECITABINE COMBINED WITH PYROTINIB MALEATE
     Dates: start: 20211026
  16. LETROZOLE [Concomitant]
     Active Substance: LETROZOLE
     Indication: Breast cancer metastatic
     Dates: start: 201510, end: 201610

REACTIONS (2)
  - Ill-defined disorder [Unknown]
  - Myelosuppression [Unknown]
